FAERS Safety Report 10305369 (Version 3)
Quarter: 2014Q4

REPORT INFORMATION
  Report Type: Spontaneous
  Country: US (occurrence: US)
  Receive Date: 20140715
  Receipt Date: 20141125
  Transmission Date: 20150528
  Serious: Yes (Other)
  Sender: FDA-Public Use
  Company Number: US-BAYER-2014-104786

PATIENT
  Age: 40 Year
  Sex: Female
  Weight: 124.72 kg

DRUGS (2)
  1. MIRENA [Suspect]
     Active Substance: LEVONORGESTREL
     Indication: CONTRACEPTION
     Dosage: 20 MCG/24HR, CONT
     Route: 015
     Dates: start: 20140707, end: 20140707
  2. MIRENA [Suspect]
     Active Substance: LEVONORGESTREL
     Indication: OESTROGEN REPLACEMENT THERAPY
     Dosage: 20 MCG/24HR, CONT
     Route: 015
     Dates: start: 20140707, end: 20140707

REACTIONS (4)
  - Embedded device [None]
  - Device difficult to use [None]
  - Complication of device insertion [None]
  - Uterine perforation [Recovered/Resolved]

NARRATIVE: CASE EVENT DATE: 20140707
